FAERS Safety Report 9130846 (Version 2)
Quarter: 2013Q2

REPORT INFORMATION
  Report Type: Spontaneous
  Country: IT (occurrence: IT)
  Receive Date: 20130301
  Receipt Date: 20130412
  Transmission Date: 20140414
  Serious: Yes (Hospitalization)
  Sender: FDA-Public Use
  Company Number: IT-PFIZER INC-2013071573

PATIENT
  Age: 44 Year
  Sex: Male

DRUGS (2)
  1. LYRICA [Suspect]
     Dosage: 14 TABLETS (150 MG) AND 4 TABLETS (75 MG)
     Route: 048
     Dates: start: 20121213, end: 20121213
  2. LAROXYL [Suspect]
     Dosage: 20 ML
     Route: 048
     Dates: start: 20121213, end: 20121213

REACTIONS (3)
  - Sopor [Recovering/Resolving]
  - Drug abuse [Recovering/Resolving]
  - Intentional self-injury [Recovering/Resolving]
